FAERS Safety Report 6186420-6 (Version None)
Quarter: 2009Q2

REPORT INFORMATION
  Report Type: 
  Country: None (occurrence: None)
  Receive Date: 20090511
  Receipt Date: 20090428
  Transmission Date: 20091009
  Serious: Yes (Other)
  Sender: FDA-Public Use
  Company Number: CH-AMGEN-US334865

PATIENT
  Age: 49 Year
  Sex: Female

DRUGS (2)
  1. ENBREL [Suspect]
     Indication: RHEUMATOID ARTHRITIS
     Dates: start: 20081001, end: 20081201
  2. TELFAST [Concomitant]

REACTIONS (2)
  - HYPERSENSITIVITY [None]
  - IMMUNE SYSTEM DISORDER [None]
